FAERS Safety Report 9354435 (Version 1)
Quarter: 2013Q2

REPORT INFORMATION
  Report Type: Spontaneous
  Country: FR (occurrence: FR)
  Receive Date: 20130618
  Receipt Date: 20130618
  Transmission Date: 20140414
  Serious: Yes (Death, Hospitalization, Other)
  Sender: FDA-Public Use
  Company Number: FR-BAXTER-2013BAX021931

PATIENT
  Age: 44 Year
  Sex: Male

DRUGS (3)
  1. ENDOXAN 2000 MG, LYOPHILISAT POUR SOLUTION INJECTABLE [Suspect]
     Indication: CENTRAL NERVOUS SYSTEM LYMPHOMA
     Route: 042
     Dates: start: 20130413, end: 20130414
  2. THIOTEPA [Suspect]
     Indication: CENTRAL NERVOUS SYSTEM LYMPHOMA
     Route: 042
     Dates: start: 20130406, end: 20130408
  3. BUSULFAN [Suspect]
     Indication: CENTRAL NERVOUS SYSTEM LYMPHOMA
     Route: 042
     Dates: start: 20130409, end: 20130411

REACTIONS (5)
  - Death [Fatal]
  - Dermatitis bullous [Not Recovered/Not Resolved]
  - Febrile bone marrow aplasia [Unknown]
  - Respiratory distress [Unknown]
  - Septic shock [Unknown]
